FAERS Safety Report 9204438 (Version 2)
Quarter: 2013Q2

REPORT INFORMATION
  Report Type: Spontaneous
  Country: AU (occurrence: AU)
  Receive Date: 20130402
  Receipt Date: 20130402
  Transmission Date: 20140414
  Serious: Yes (Other)
  Sender: FDA-Public Use
  Company Number: AU-PFIZER INC-2013060550

PATIENT
  Age: 57 Year
  Sex: Female

DRUGS (1)
  1. PYRALIN EN [Suspect]
     Dosage: 2 DF, 2X/DAY
     Route: 048
     Dates: start: 20130115, end: 20130201

REACTIONS (3)
  - Rash [Recovering/Resolving]
  - Pyrexia [Recovering/Resolving]
  - Lymphadenopathy [Recovering/Resolving]
